FAERS Safety Report 6124035-6 (Version None)
Quarter: 2009Q1

REPORT INFORMATION
  Report Type: 
  Country: None (occurrence: None)
  Receive Date: 20090319
  Receipt Date: 20090310
  Transmission Date: 20090719
  Serious: Yes (Other)
  Sender: FDA-Public Use
  Company Number: PHHY2009GB08850

PATIENT
  Age: 10 Year
  Sex: Male

DRUGS (2)
  1. RITALIN [Suspect]
     Dosage: 5 MG, TID
  2. RITALIN [Suspect]
     Dosage: 10 MG, TID

REACTIONS (1)
  - RECTAL HAEMORRHAGE [None]
